FAERS Safety Report 4305779-5 (Version None)
Quarter: 2004Q1

REPORT INFORMATION
  Report Type: 
  Country: None (occurrence: None)
  Receive Date: 20040225
  Receipt Date: 20021211
  Transmission Date: 20041129
  Serious: Yes (Death)
  Sender: FDA-Public Use
  Company Number: 163-20785-02120226

PATIENT
  Age: 79 Year
  Sex: Male

DRUGS (4)
  1. THALOMID [Suspect]
     Indication: GLIOBLASTOMA MULTIFORME
     Dosage: 200 MG, QD, ORAL
     Route: 048
     Dates: start: 20021011, end: 20021030
  2. TEMOZOLOMIDE [Suspect]
     Indication: GLIOBLASTOMA MULTIFORME
     Dosage: 330 MG, ORAL
     Route: 048
     Dates: start: 20021011, end: 20021015
  3. CELEBREX [Suspect]
     Indication: GLIOBLASTOMA MULTIFORME
     Dosage: 200 MG, BID, ORAL
     Route: 048
     Dates: start: 20021011, end: 20021030
  4. RISPERDAL [Concomitant]

REACTIONS (16)
  - AGGRESSION [None]
  - AGITATION [None]
  - ASTHENIA [None]
  - ATAXIA [None]
  - BODY TEMPERATURE INCREASED [None]
  - COMA [None]
  - CONSTIPATION [None]
  - GAIT DISTURBANCE [None]
  - HEART RATE DECREASED [None]
  - HYPOTONIA [None]
  - OEDEMA PERIPHERAL [None]
  - RESPIRATORY TRACT CONGESTION [None]
  - SEDATION [None]
  - SOMNOLENCE [None]
  - TACHYPNOEA [None]
  - URINE OUTPUT DECREASED [None]
